FAERS Safety Report 23845895 (Version 1)
Quarter: 2024Q2

REPORT INFORMATION
  Report Type: Spontaneous
  Country: US (occurrence: US)
  Receive Date: 20240512
  Receipt Date: 20240512
  Transmission Date: 20240715
  Serious: No
  Sender: FDA-Public Use
  Company Number: US-CIPLA LTD.-2023US07919

PATIENT

DRUGS (6)
  1. ALBUTEROL [Suspect]
     Active Substance: ALBUTEROL
     Indication: Supplementation therapy
     Dosage: UNK, (THRICE A DAY OR AS NEEDED)
  2. ALBUTEROL [Suspect]
     Active Substance: ALBUTEROL
     Indication: Dyspnoea
  3. ALBUTEROL [Suspect]
     Active Substance: ALBUTEROL
     Indication: Feeling abnormal
  4. LATANOPROST [Concomitant]
     Active Substance: LATANOPROST
     Indication: Ocular discomfort
     Dosage: 1 DROP, BID (ONE DROP IN MORNING AND ONE DROP IN AFTERNOON OR NIGHT)
     Route: 065
  5. TIMOLOL MALEATE [Concomitant]
     Active Substance: TIMOLOL MALEATE
     Indication: Ocular discomfort
     Dosage: 1 DROP, BID (ONE DROP IN MORNING AND ONE DROP IN AFTERNOON OR NIGHT)
     Route: 065
  6. TRELEGY ELLIPTA [Concomitant]
     Active Substance: FLUTICASONE FUROATE\UMECLIDINIUM BROMIDE\VILANTEROL TRIFENATATE
     Indication: Product used for unknown indication
     Dosage: UNK, QD (ONCE IN MORNING)
     Route: 065

REACTIONS (4)
  - Dyspnoea [Recovered/Resolved]
  - Drug ineffective [Recovered/Resolved]
  - Device delivery system issue [Unknown]
  - Device occlusion [Unknown]

NARRATIVE: CASE EVENT DATE: 20230101
